FAERS Safety Report 12774057 (Version 1)
Quarter: 2016Q3

REPORT INFORMATION
  Report Type: Spontaneous
  Country: US (occurrence: US)
  Receive Date: 20160923
  Receipt Date: 20160923
  Transmission Date: 20161109
  Serious: No
  Sender: FDA-Public Use
  Company Number: US-TEVA-695365USA

PATIENT
  Sex: Male

DRUGS (4)
  1. COPAXONE [Suspect]
     Active Substance: GLATIRAMER ACETATE
     Indication: MULTIPLE SCLEROSIS
     Route: 058
     Dates: start: 20140909
  2. GABAPENTIN. [Concomitant]
     Active Substance: GABAPENTIN
  3. LYRICA [Concomitant]
     Active Substance: PREGABALIN
  4. BIOTIN [Concomitant]
     Active Substance: BIOTIN

REACTIONS (1)
  - Injection site reaction [Not Recovered/Not Resolved]

NARRATIVE: CASE EVENT DATE: 2016
